FAERS Safety Report 5045511-3 (Version None)
Quarter: 2006Q2

REPORT INFORMATION
  Report Type: 
  Country: None (occurrence: None)
  Receive Date: 20060601
  Receipt Date: 20060410
  Transmission Date: 20061013
  Serious: No
  Sender: FDA-Public Use
  Company Number: 2006-BP-04035BP

PATIENT
  Sex: Female

DRUGS (18)
  1. SPIRIVA [Suspect]
     Indication: CHRONIC OBSTRUCTIVE PULMONARY DISEASE
     Dosage: 18 MCG (18 MCG,1 IN 1 D), IH
     Dates: start: 20060407, end: 20060409
  2. OXYGEN (OXYGEN) [Concomitant]
  3. ISOSORBIDE (ISOSORBIDE) [Concomitant]
  4. PREVACID [Concomitant]
  5. NEURONTIN [Concomitant]
  6. ENALAPRIL MALEATE [Concomitant]
  7. HTCZ [Concomitant]
  8. TRAZODONE HCL [Concomitant]
  9. ALPRAZOLAM [Concomitant]
  10. METHOCARBINOL [Concomitant]
  11. ZETIA [Concomitant]
  12. COQ12 [Concomitant]
  13. MULTIVITAMIN [Concomitant]
  14. VIT C [Concomitant]
  15. VIT E [Concomitant]
  16. FISH OIL [Concomitant]
  17. EVENING PRIMROSE [Concomitant]
  18. GRAPE SEED OIL [Concomitant]

REACTIONS (19)
  - ANGINA PECTORIS [None]
  - BODY TEMPERATURE INCREASED [None]
  - CARDIAC FLUTTER [None]
  - CHEST DISCOMFORT [None]
  - CHOKING [None]
  - DIZZINESS [None]
  - DRY MOUTH [None]
  - DYSPNOEA [None]
  - EYE PAIN [None]
  - FLUSHING [None]
  - FREQUENT BOWEL MOVEMENTS [None]
  - GASTROOESOPHAGEAL REFLUX DISEASE [None]
  - HEADACHE [None]
  - INCREASED UPPER AIRWAY SECRETION [None]
  - LUNG DISORDER [None]
  - MUSCLE SPASMS [None]
  - PHARYNGOLARYNGEAL PAIN [None]
  - SLEEP APNOEA SYNDROME [None]
  - TINNITUS [None]
